FAERS Safety Report 8004400-2 (Version None)
Quarter: 2011Q4

REPORT INFORMATION
  Report Type: 
  Country: None (occurrence: None)
  Receive Date: 20111223
  Receipt Date: 20111209
  Transmission Date: 20120403
  Serious: Yes (Hospitalization, Other)
  Sender: FDA-Public Use
  Company Number: TR-RANBAXY-2011RR-48891

PATIENT
  Sex: Female

DRUGS (1)
  1. FENOFIBRATE [Suspect]
     Indication: HYPERCHOLESTEROLAEMIA
     Dosage: 200 MG, QD
     Route: 048

REACTIONS (3)
  - MYOPATHY [None]
  - RENAL FAILURE ACUTE [None]
  - RHABDOMYOLYSIS [None]
